FAERS Safety Report 15313541 (Version 2)
Quarter: 2019Q1

REPORT INFORMATION
  Report Type: Spontaneous
  Country: DE (occurrence: DE)
  Receive Date: 20180824
  Receipt Date: 20190321
  Transmission Date: 20190417
  Serious: Yes (Hospitalization, Other)
  Sender: FDA-Public Use
  Company Number: DE-DRREDDYS-GER/GER/18/0103298

PATIENT
  Age: 68 Year
  Sex: Female
  Weight: 50 kg

DRUGS (21)
  1. ARIXTRA [Concomitant]
     Active Substance: FONDAPARINUX SODIUM
     Indication: THROMBOSIS PROPHYLAXIS
     Dates: start: 20111219
  2. AVASTIN [Suspect]
     Active Substance: BEVACIZUMAB
     Route: 042
     Dates: start: 20111205, end: 20111205
  3. RANITIDINE. [Suspect]
     Active Substance: RANITIDINE
     Indication: BREAST CANCER METASTATIC
     Route: 042
     Dates: start: 20110825
  4. XELODA [Suspect]
     Active Substance: CAPECITABINE
     Dates: start: 20111109, end: 20111206
  5. AVASTIN [Suspect]
     Active Substance: BEVACIZUMAB
     Indication: BREAST CANCER
     Route: 042
     Dates: start: 20110825, end: 20111205
  6. TROFEN [Concomitant]
     Indication: PRODUCT USED FOR UNKNOWN INDICATION
  7. ZOLEDRONIC ACID [Suspect]
     Active Substance: ZOLEDRONIC ACID
     Indication: BREAST CANCER METASTATIC
     Route: 042
     Dates: start: 20110825, end: 20110825
  8. TAVEGIL [Suspect]
     Active Substance: CLEMASTINE FUMARATE
     Indication: BREAST CANCER METASTATIC
     Route: 042
     Dates: start: 20110825
  9. ZOMETA [Suspect]
     Active Substance: ZOLEDRONIC ACID
     Indication: BREAST CANCER
     Dates: start: 20110825, end: 20110825
  10. TORSEMIDE. [Concomitant]
     Active Substance: TORSEMIDE
     Indication: PRODUCT USED FOR UNKNOWN INDICATION
     Dates: start: 20100101
  11. GRANISETRON HYDROCHLORIDE. [Suspect]
     Active Substance: GRANISETRON HYDROCHLORIDE
     Indication: BREAST CANCER METASTATIC
     Route: 042
     Dates: start: 20110825
  12. XELODA [Suspect]
     Active Substance: CAPECITABINE
     Indication: BREAST CANCER
     Dates: start: 20111206
  13. XELODA [Suspect]
     Active Substance: CAPECITABINE
     Dates: start: 20111019, end: 20111206
  14. XELODA [Suspect]
     Active Substance: CAPECITABINE
     Dates: start: 20111019, end: 20111206
  15. METOPROLOL. [Concomitant]
     Active Substance: METOPROLOL
     Indication: PRODUCT USED FOR UNKNOWN INDICATION
     Route: 065
  16. DENOSUMAB [Concomitant]
     Active Substance: DENOSUMAB
     Dates: start: 20120116
  17. PACLITAXEL. [Suspect]
     Active Substance: PACLITAXEL
     Indication: BREAST CANCER METASTATIC
     Route: 042
     Dates: start: 20110825, end: 20110922
  18. DEXAMETHASONE. [Suspect]
     Active Substance: DEXAMETHASONE
     Indication: BREAST CANCER METASTATIC
     Route: 042
     Dates: start: 20110825
  19. HYDROCHLOROTHIAZIDE. [Concomitant]
     Active Substance: HYDROCHLOROTHIAZIDE
     Indication: PRODUCT USED FOR UNKNOWN INDICATION
     Route: 065
     Dates: start: 201001
  20. XELODA [Suspect]
     Active Substance: CAPECITABINE
     Dates: start: 20111206, end: 20111206
  21. DENOSUMAB [Concomitant]
     Active Substance: DENOSUMAB
     Indication: BREAST CANCER
     Route: 065
     Dates: start: 20101020

REACTIONS (15)
  - Nausea [Recovered/Resolved]
  - Diarrhoea [Recovered/Resolved]
  - General physical health deterioration [Recovered/Resolved]
  - Venous thrombosis limb [Recovering/Resolving]
  - Periodontitis [Not Recovered/Not Resolved]
  - Mucosal inflammation [Recovered/Resolved]
  - Dyspnoea [Recovered/Resolved]
  - Hypertension [Recovering/Resolving]
  - Vomiting [Recovered/Resolved]
  - Thrombosis [Not Recovered/Not Resolved]
  - Weight decreased [Recovered/Resolved]
  - Dysphagia [Recovered/Resolved]
  - Tooth erosion [Recovered/Resolved]
  - Pulpitis dental [Recovered/Resolved]
  - Sensory disturbance [Recovered/Resolved]

NARRATIVE: CASE EVENT DATE: 20110827
